FAERS Safety Report 12591988 (Version 1)
Quarter: 2016Q3

REPORT INFORMATION
  Report Type: Spontaneous
  Country: US (occurrence: None)
  Receive Date: 20160725
  Receipt Date: 20160725
  Transmission Date: 20161109
  Serious: Yes (Disabling, Other)
  Sender: FDA-Public Use
  Company Number: None

PATIENT
  Age: 19 Year
  Sex: Male
  Weight: 63.5 kg

DRUGS (5)
  1. CLARAVIS [Suspect]
     Active Substance: ISOTRETINOIN
     Indication: ACNE
     Route: 048
     Dates: start: 20160117, end: 20160520
  2. PROZAC [Concomitant]
     Active Substance: FLUOXETINE HYDROCHLORIDE
  3. CITICOLINE [Concomitant]
     Active Substance: CITICOLINE
  4. MELATONIN [Concomitant]
     Active Substance: MELATONIN
  5. L-TYROSINE [Concomitant]

REACTIONS (3)
  - Depression [None]
  - Sexual dysfunction [None]
  - Anhedonia [None]

NARRATIVE: CASE EVENT DATE: 20160309
